FAERS Safety Report 19466479 (Version 3)
Quarter: 2021Q3

REPORT INFORMATION
  Report Type: Spontaneous
  Country: BE (occurrence: BE)
  Receive Date: 20210628
  Receipt Date: 20210826
  Transmission Date: 20211014
  Serious: Yes (Hospitalization)
  Sender: FDA-Public Use
  Company Number: BE-CELLTRION INC.-2021BE008427

PATIENT

DRUGS (4)
  1. INFLIXIMAB (UNKNOWN) [Suspect]
     Active Substance: INFLIXIMAB
     Indication: CROHN^S DISEASE
     Dosage: 5 MG/KG, Q6W (FROM 8TH MONTH OF YEAR 2 TO 10TH MONTH OF YEAR 3)
     Route: 041
  2. INFLIXIMAB (UNKNOWN) [Suspect]
     Active Substance: INFLIXIMAB
     Dosage: 5 MG/KG, Q2MO (10 MONTHS OF YEAR 1)
     Route: 041
  3. INFLIXIMAB (UNKNOWN) [Suspect]
     Active Substance: INFLIXIMAB
     Dosage: 5 MG/KG, Q2MO (FROM 10TH MONTH OF YEAR 3)
     Route: 041
  4. INFLIXIMAB (UNKNOWN) [Suspect]
     Active Substance: INFLIXIMAB
     Dosage: 7.5 MG/KG, Q2MO (11TH MONTH OF YEAR 1 TO 8TH MONTH OF YEAR 2)
     Route: 041

REACTIONS (2)
  - Drug level above therapeutic [Unknown]
  - Obsessive-compulsive disorder [Recovered/Resolved]
